FAERS Safety Report 15156178 (Version 1)
Quarter: 2018Q3

REPORT INFORMATION
  Report Type: Spontaneous
  Country: IT (occurrence: IT)
  Receive Date: 20180717
  Receipt Date: 20180717
  Transmission Date: 20181010
  Serious: Yes (Other)
  Sender: FDA-Public Use
  Company Number: IT-PFIZER INC-2017390119

PATIENT
  Age: 18 Year
  Sex: Male

DRUGS (1)
  1. XANAX [Suspect]
     Active Substance: ALPRAZOLAM
     Dosage: 8 DF, TOTAL
     Route: 048
     Dates: start: 20170621, end: 20170621

REACTIONS (3)
  - Drug abuse [Recovering/Resolving]
  - Incorrect dose administered [Unknown]
  - Sopor [Recovering/Resolving]

NARRATIVE: CASE EVENT DATE: 20170621
